FAERS Safety Report 6536407-6 (Version None)
Quarter: 2010Q1

REPORT INFORMATION
  Report Type: 
  Country: None (occurrence: None)
  Receive Date: 20100113
  Receipt Date: 20091221
  Transmission Date: 20100710
  Serious: No
  Sender: FDA-Public Use
  Company Number: US-ALLERGAN-0917524US

PATIENT
  Sex: Female

DRUGS (5)
  1. LATISSE [Suspect]
     Indication: GROWTH OF EYELASHES
     Dosage: 1 GTT, QHS
     Route: 061
  2. LISINOPRIL [Concomitant]
     Indication: HYPERTENSION
  3. TOPAMAX [Concomitant]
  4. KLONOPIN [Concomitant]
  5. PROZAC [Concomitant]
     Dosage: UNK

REACTIONS (1)
  - SKIN HYPERPIGMENTATION [None]
